FAERS Safety Report 7290058-7 (Version None)
Quarter: 2011Q1

REPORT INFORMATION
  Report Type: 
  Country: None (occurrence: None)
  Receive Date: 20110201
  Receipt Date: 20110115
  Transmission Date: 20110831
  Serious: Yes (Other)
  Sender: FDA-Public Use
  Company Number: 2011AP000054

PATIENT
  Age: 51 Year
  Sex: Male

DRUGS (4)
  1. PREDNISOLONE [Suspect]
     Indication: VASCULITIS
     Dosage: PO
     Route: 048
  2. PREDNISOLONE [Suspect]
     Indication: VASCULITIS
     Dosage: IA
  3. PREDNISOLONE [Suspect]
     Indication: ARTHRALGIA
     Dosage: IA
  4. FLUTICASONE PROPIONATE [Suspect]
     Indication: VASCULITIS
     Dosage: TOP
     Route: 061

REACTIONS (1)
  - DERMATITIS CONTACT [None]
